FAERS Safety Report 6151666-X (Version None)
Quarter: 2009Q2

REPORT INFORMATION
  Report Type: 
  Country: None (occurrence: None)
  Receive Date: 20090410
  Receipt Date: 20090403
  Transmission Date: 20091009
  Serious: Yes (Other)
  Sender: FDA-Public Use
  Company Number: US-AVENTIS-200912822US

PATIENT
  Sex: Male

DRUGS (20)
  1. LANTUS [Suspect]
     Indication: DIABETES MELLITUS
     Dosage: DOSE: UNK
     Route: 058
  2. LANTUS [Suspect]
     Route: 058
  3. OPTICLIK (INSULIN INJECTION PEN) [Suspect]
     Indication: DIABETES MELLITUS
     Dates: start: 20060101
  4. VENTOLIN [Concomitant]
     Dosage: DOSE: 2 PUFFS EVERY 4-6 HOURS
  5. FLOVENT [Concomitant]
     Dosage: DOSE: 2 PUFFS
  6. ASACOL [Concomitant]
  7. NEXIUM [Concomitant]
  8. SIMVASTATIN [Concomitant]
  9. MULTI-VITAMINS [Concomitant]
     Dosage: DOSE: 1 TAB
  10. ISOSORBIDE [Concomitant]
  11. FOLIC ACID [Concomitant]
  12. QUINAPRIL [Concomitant]
  13. FUROSEMIDE [Concomitant]
  14. SPIRONOLACTONE [Concomitant]
  15. COREG [Concomitant]
  16. GLYBURIDE [Concomitant]
  17. FISH OIL [Concomitant]
     Dosage: DOSE: 2 CAPS
  18. LORTADINE [Concomitant]
  19. FERREX [Concomitant]
  20. ASPIRIN [Concomitant]
     Dosage: DOSE: 1 TAB

REACTIONS (2)
  - BLINDNESS TRANSIENT [None]
  - ORAL HERPES [None]
